FAERS Safety Report 5261436-2 (Version None)
Quarter: 2007Q1

REPORT INFORMATION
  Report Type: 
  Country: None (occurrence: None)
  Receive Date: 20070307
  Receipt Date: 20070219
  Transmission Date: 20070707
  Serious: Yes (Hospitalization)
  Sender: FDA-Public Use
  Company Number: 2006JP005423

PATIENT
  Age: 19 Year
  Sex: Male

DRUGS (7)
  1. PROGRAF [Suspect]
     Indication: RENAL TRANSPLANT
     Dosage: 2 MG, BID, ORAL
     Route: 048
     Dates: start: 20010630
  2. CELLCEPT [Suspect]
     Indication: RENAL TRANSPLANT
     Dosage: 0.5 G, BID, ORAL
     Route: 048
     Dates: start: 20030330, end: 20060114
  3. MEDROL [Suspect]
     Indication: RENAL TRANSPLANT
     Dosage: 8 MG, UID/QD, ORAL
     Route: 048
     Dates: start: 20010703
  4. PRERAN (TRANDOLAPRIL) TABLET [Concomitant]
  5. BLOPRESS (CANDESARTAN CILEXETIL) TABLET [Concomitant]
  6. IPD (SUPLATAST TOSILATE) CAPSULE [Concomitant]
  7. LIVALO (ITAVASTATIN CALCIUM) TABLET [Concomitant]

REACTIONS (12)
  - ADENOVIRUS INFECTION [None]
  - ARTERIOSCLEROSIS [None]
  - BLOOD PRESSURE DIASTOLIC DECREASED [None]
  - CHRONIC ALLOGRAFT NEPHROPATHY [None]
  - COMPLICATIONS OF TRANSPLANTED KIDNEY [None]
  - HYPERTENSION [None]
  - INFECTION IN AN IMMUNOCOMPROMISED HOST [None]
  - KIDNEY TRANSPLANT REJECTION [None]
  - NEPHRITIS INTERSTITIAL [None]
  - POST PROCEDURAL INFECTION [None]
  - RENAL NECROSIS [None]
  - TUBULOINTERSTITIAL NEPHRITIS [None]
